FAERS Safety Report 9888427 (Version 1)
Quarter: 2014Q1

REPORT INFORMATION
  Report Type: Spontaneous
  Country: GB (occurrence: GB)
  Receive Date: 20140211
  Receipt Date: 20140211
  Transmission Date: 20141002
  Serious: Yes (Other)
  Sender: FDA-Public Use
  Company Number: GB-TEVA-460895ISR

PATIENT
  Age: 85 Year
  Sex: Female

DRUGS (2)
  1. RISPERIDONE [Suspect]
     Indication: PRODUCT USED FOR UNKNOWN INDICATION
  2. UNSPECIFIED SEDATIVE [Concomitant]
     Indication: INSOMNIA

REACTIONS (3)
  - Pre-existing disease [Unknown]
  - Lower respiratory tract infection [Unknown]
  - Urinary tract infection [Unknown]
